FAERS Safety Report 11219284 (Version 1)
Quarter: 2015Q2

REPORT INFORMATION
  Report Type: Spontaneous
  Country: NL (occurrence: NL)
  Receive Date: 20150625
  Receipt Date: 20150625
  Transmission Date: 20150821
  Serious: Yes (Hospitalization, Other)
  Sender: FDA-Public Use
  Company Number: NL-APOTEX-2015AP006725

PATIENT
  Sex: Male
  Weight: 3.48 kg

DRUGS (3)
  1. FLUVOXAMINE [Suspect]
     Active Substance: FLUVOXAMINE
     Indication: PERSONALITY DISORDER
     Dosage: 200 MG, DAILY
     Route: 064
  2. FLUVOXAMINE [Suspect]
     Active Substance: FLUVOXAMINE
     Indication: OBSESSIVE-COMPULSIVE DISORDER
  3. FLUVOXAMINE [Suspect]
     Active Substance: FLUVOXAMINE
     Indication: DEPRESSION

REACTIONS (4)
  - Exposure during breast feeding [Unknown]
  - Bradycardia foetal [Unknown]
  - Foetal exposure during pregnancy [Recovered/Resolved]
  - Neonatal behavioural syndrome [Recovered/Resolved]
